FAERS Safety Report 4366231-4 (Version None)
Quarter: 2004Q2

REPORT INFORMATION
  Report Type: 
  Country: None (occurrence: None)
  Receive Date: 20040527
  Receipt Date: 20040427
  Transmission Date: 20050107
  Serious: No
  Sender: FDA-Public Use
  Company Number: US-BRISTOL-MYERS SQUIBB COMPANY-12573432

PATIENT
  Age: 28 Year
  Sex: Female

DRUGS (1)
  1. DEFINITY [Suspect]
     Dosage: DILUTED BOLUS MIXED WITH 3CC PRESERVATIVE FREE SALINE IN SYRINGE
     Route: 051
     Dates: start: 20040414, end: 20040414

REACTIONS (3)
  - DYSGEUSIA [None]
  - DYSPNOEA [None]
  - FLUSHING [None]
